FAERS Safety Report 17545364 (Version 2)
Quarter: 2020Q2

REPORT INFORMATION
  Report Type: Report from Study
  Country: None (occurrence: US)
  Receive Date: 20200316
  Receipt Date: 20200402
  Transmission Date: 20200713
  Serious: Yes (Other)
  Sender: FDA-Public Use
  Company Number: US-ABBVIE-20K-163-3318825-00

PATIENT
  Age: 35 Year
  Sex: Female
  Weight: 95.34 kg

DRUGS (3)
  1. PRENATAL [Concomitant]
     Active Substance: VITAMINS
     Indication: PRODUCT USED FOR UNKNOWN INDICATION
  2. SKYRIZI [Suspect]
     Active Substance: RISANKIZUMAB-RZAA
     Indication: PSORIASIS
     Dosage: WEEK 0, WEEK 4 AND WEEK 12
     Route: 058
     Dates: start: 202002, end: 202002
  3. ALLERGY MEDICATION [Concomitant]
     Active Substance: DIPHENHYDRAMINE HYDROCHLORIDE
     Indication: HYPERSENSITIVITY

REACTIONS (4)
  - Urinary tract infection [Recovered/Resolved]
  - Vaginal haemorrhage [Recovered/Resolved]
  - Maternal exposure during pregnancy [Unknown]
  - Abortion spontaneous [Unknown]

NARRATIVE: CASE EVENT DATE: 202002
